FAERS Safety Report 5938071-3 (Version None)
Quarter: 2008Q4

REPORT INFORMATION
  Report Type: 
  Country: None (occurrence: None)
  Receive Date: 20081031
  Receipt Date: 20081023
  Transmission Date: 20090506
  Serious: Yes (Other)
  Sender: FDA-Public Use
  Company Number: PHHY2008BE26018

PATIENT

DRUGS (1)
  1. GLEEVEC [Suspect]
     Indication: GASTROINTESTINAL STROMAL TUMOUR
     Dosage: 400 MG DAILY
     Dates: start: 20080801

REACTIONS (11)
  - AMNESIA [None]
  - BONE PAIN [None]
  - ERYTHEMA [None]
  - EYELID OEDEMA [None]
  - FACE OEDEMA [None]
  - GAIT DISTURBANCE [None]
  - HEADACHE [None]
  - MOUTH ULCERATION [None]
  - MUSCLE SPASMS [None]
  - PAIN [None]
  - SKIN LESION [None]
